FAERS Safety Report 18987366 (Version 1)
Quarter: 2021Q1

REPORT INFORMATION
  Report Type: Spontaneous
  Country: AU (occurrence: AU)
  Receive Date: 20210309
  Receipt Date: 20210309
  Transmission Date: 20210420
  Serious: Yes (Other)
  Sender: FDA-Public Use
  Company Number: AU-PFIZER INC-2021226664

PATIENT
  Age: 170 Month
  Sex: Male
  Weight: 44 kg

DRUGS (2)
  1. GENOTROPIN [Suspect]
     Active Substance: SOMATROPIN
     Dosage: STARTING AT 1 IU ON ALTERNATE DAYS AND INCREASING TO 3 IU DAILY OVER 6 WEEKS
  2. GENOTROPIN [Suspect]
     Active Substance: SOMATROPIN
     Indication: GROWTH FAILURE
     Dosage: 18.7 IUM^2 /WEEK OR 5 IU DAILY FOR 5 D PER WEEK

REACTIONS (2)
  - Idiopathic intracranial hypertension [Recovering/Resolving]
  - Papilloedema [Recovered/Resolved]
